FAERS Safety Report 5604220-X (Version None)
Quarter: 2008Q1

REPORT INFORMATION
  Report Type: 
  Country: None (occurrence: None)
  Receive Date: 20080128
  Receipt Date: 20080116
  Transmission Date: 20080703
  Serious: Yes (Hospitalization)
  Sender: FDA-Public Use
  Company Number: FR-WYE-H02210808

PATIENT
  Sex: Female

DRUGS (5)
  1. AVLOCARDYL [Suspect]
     Dosage: DELIBERATE OVERDOSE OF NINE, 40 MG TABLETS
     Route: 048
     Dates: start: 20070831, end: 20070831
  2. ETHANOL [Suspect]
     Dosage: UNKNOWN
     Route: 048
     Dates: start: 20070831, end: 20070831
  3. STILNOX [Suspect]
     Dosage: ELEVEN TABLETS, (DOSE UNKNOWN)
     Route: 048
     Dates: start: 20070831, end: 20070831
  4. LEXOMIL [Suspect]
     Dosage: FOUR TABLETS, (DOSE UNSPECIFIED)
     Route: 048
     Dates: start: 20070831, end: 20070831
  5. XANAX [Suspect]
     Dosage: SIX, 0.25 MG TABLETS
     Route: 048
     Dates: start: 20070831, end: 20070831

REACTIONS (3)
  - BLISTER [None]
  - COMA [None]
  - INTENTIONAL OVERDOSE [None]
